FAERS Safety Report 9468775 (Version 1)
Quarter: 2013Q3

REPORT INFORMATION
  Report Type: Spontaneous
  Country: US (occurrence: US)
  Receive Date: 20130821
  Receipt Date: 20130821
  Transmission Date: 20140515
  Serious: Yes (Other)
  Sender: FDA-Public Use
  Company Number: US-TEVA-426746USA

PATIENT
  Sex: Female

DRUGS (1)
  1. PARAGARD 380A [Suspect]
     Indication: CONTRACEPTION
     Route: 015
     Dates: start: 201206, end: 20130525

REACTIONS (6)
  - Device dislocation [Recovered/Resolved]
  - Embedded device [Recovered/Resolved]
  - Infection [Recovered/Resolved]
  - Uterine perforation [Unknown]
  - Scar [Not Recovered/Not Resolved]
  - Infertility female [Not Recovered/Not Resolved]
